FAERS Safety Report 15829514 (Version 1)
Quarter: 2019Q1

REPORT INFORMATION
  Report Type: Spontaneous
  Country: US (occurrence: US)
  Receive Date: 20190115
  Receipt Date: 20190115
  Transmission Date: 20190417
  Serious: No
  Sender: FDA-Public Use
  Company Number: US-ALLERGAN-1845304US

PATIENT
  Sex: Female

DRUGS (4)
  1. RESTASIS [Suspect]
     Active Substance: CYCLOSPORINE
     Dosage: 2 GTT, BID
     Route: 047
  2. RESTASIS [Suspect]
     Active Substance: CYCLOSPORINE
     Indication: DRY EYE
     Dosage: 2 GTT, BID
     Route: 047
  3. OTC EYE DROP [Concomitant]
     Indication: OCULAR HYPERAEMIA
     Dosage: UNK
     Route: 047
  4. OTC EYE DROP [Concomitant]
     Indication: ASTHENOPIA

REACTIONS (6)
  - Eye irritation [Recovered/Resolved]
  - Asthenopia [Unknown]
  - Vision blurred [Recovered/Resolved]
  - Product lot number issue [Unknown]
  - Hypersensitivity [Unknown]
  - Ocular hyperaemia [Recovered/Resolved]
